FAERS Safety Report 7711905-8 (Version None)
Quarter: 2011Q3

REPORT INFORMATION
  Report Type: 
  Country: None (occurrence: None)
  Receive Date: 20110826
  Receipt Date: 20110815
  Transmission Date: 20111222
  Serious: Yes (Hospitalization, Other)
  Sender: FDA-Public Use
  Company Number: US-BRISTOL-MYERS SQUIBB COMPANY-15972425

PATIENT
  Age: 73 Year
  Sex: Male

DRUGS (6)
  1. WARFARIN SODIUM [Suspect]
  2. FRAGMIN [Suspect]
     Dosage: 1DF: 12000U.
     Route: 058
  3. LIPITOR [Concomitant]
  4. ASPIRIN [Concomitant]
  5. ENOXAPARIN SODIUM [Suspect]
     Route: 058
  6. AMLODIPINE [Concomitant]

REACTIONS (4)
  - DEEP VEIN THROMBOSIS [None]
  - HEPARIN-INDUCED THROMBOCYTOPENIA [None]
  - HAEMORRHAGIC INFARCTION [None]
  - ACUTE MYOCARDIAL INFARCTION [None]
